FAERS Safety Report 20371244 (Version 4)
Quarter: 2022Q1

REPORT INFORMATION
  Report Type: Spontaneous
  Country: US (occurrence: US)
  Receive Date: 20220124
  Receipt Date: 20220323
  Transmission Date: 20220423
  Serious: Yes (Life-Threatening, Disabling, Other)
  Sender: FDA-Public Use
  Company Number: US-SANOFI-00935462

PATIENT
  Age: 32 Year
  Sex: Male

DRUGS (5)
  1. LANTUS [Suspect]
     Active Substance: INSULIN GLARGINE
     Indication: Type 1 diabetes mellitus
     Dosage: 25 IU, QD
  2. LANTUS [Suspect]
     Active Substance: INSULIN GLARGINE
     Dosage: 17 IU, QD
  3. LANTUS [Suspect]
     Active Substance: INSULIN GLARGINE
     Dosage: 10 IU, QD
  4. HUMALOG [Concomitant]
     Active Substance: INSULIN LISPRO
  5. HUMALOG [Concomitant]
     Active Substance: INSULIN LISPRO

REACTIONS (8)
  - Overdose [Unknown]
  - Enteric neuropathy [Unknown]
  - Seizure [Unknown]
  - Cardiac disorder [Unknown]
  - Foot fracture [Unknown]
  - Electric shock [Unknown]
  - Intentional product use issue [Unknown]
  - Incorrect dose administered [Unknown]
